FAERS Safety Report 11163845 (Version 1)
Quarter: 2015Q2

REPORT INFORMATION
  Report Type: Spontaneous
  Country: CH (occurrence: CH)
  Receive Date: 20150604
  Receipt Date: 20150604
  Transmission Date: 20150821
  Serious: Yes (Disabling, Other)
  Sender: FDA-Public Use
  Company Number: CH-PFIZER INC-2015172634

PATIENT
  Age: 63 Year
  Sex: Male

DRUGS (7)
  1. DAFALGAN [Concomitant]
     Active Substance: ACETAMINOPHEN
     Indication: THERMAL BURN
     Dosage: 1000 MG, SINGLE AS NEEDED
  2. LYRICA [Suspect]
     Active Substance: PREGABALIN
     Indication: THERMAL BURN
     Dosage: 450 MG, 1X/DAY
     Route: 048
     Dates: start: 201308
  3. VENTOLIN [Concomitant]
     Active Substance: ALBUTEROL SULFATE
     Indication: THERMAL BURN
     Dosage: UNK
  4. VOLTAREN [Concomitant]
     Active Substance: DICLOFENAC SODIUM
     Dosage: UNK, AS NEEDED
  5. LYRICA [Suspect]
     Active Substance: PREGABALIN
     Dosage: 100 MG, DAILY
     Route: 048
     Dates: end: 201406
  6. LYRICA [Suspect]
     Active Substance: PREGABALIN
     Dosage: 50 MG, WEEKLY
     Route: 048
  7. MORPHIN [Concomitant]
     Active Substance: MORPHINE
     Indication: THERMAL BURN
     Dosage: UNK
     Dates: start: 2013, end: 201402

REACTIONS (7)
  - Thinking abnormal [Recovered/Resolved]
  - Drug withdrawal syndrome [Recovered/Resolved]
  - Vomiting [Recovered/Resolved]
  - Product use issue [Recovered/Resolved]
  - Pain in extremity [Recovered/Resolved]
  - Drug dependence [Unknown]
  - Diarrhoea [Recovered/Resolved]
